FAERS Safety Report 9542178 (Version 1)
Quarter: 2013Q3

REPORT INFORMATION
  Report Type: Spontaneous
  Country: US (occurrence: None)
  Receive Date: 20130919
  Receipt Date: 20130919
  Transmission Date: 20140515
  Serious: Yes (Other)
  Sender: FDA-Public Use
  Company Number: None

PATIENT
  Age: 65 Year
  Sex: Female
  Weight: 63.05 kg

DRUGS (2)
  1. ORACEA [Suspect]
     Indication: ROSACEA
     Route: 048
     Dates: start: 20130903, end: 20130914
  2. ORACEA [Suspect]
     Route: 048
     Dates: start: 20130903, end: 20130914

REACTIONS (2)
  - Migraine [None]
  - Herpes zoster [None]
